FAERS Safety Report 8599154-5 (Version None)
Quarter: 2012Q3

REPORT INFORMATION
  Report Type: 
  Country: None (occurrence: None)
  Receive Date: 20120816
  Receipt Date: 20120807
  Transmission Date: 20120928
  Serious: No
  Sender: FDA-Public Use
  Company Number: US-ASTRAZENECA-2012SE55765

PATIENT
  Age: 69 Year
  Sex: Female
  Weight: 49.9 kg

DRUGS (7)
  1. ZOLPIDEM [Concomitant]
     Indication: FLATULENCE
  2. NEXIUM [Suspect]
     Indication: GASTROOESOPHAGEAL REFLUX DISEASE
     Route: 048
     Dates: start: 20120601, end: 20120701
  3. NEXIUM [Suspect]
     Route: 048
  4. CITALOPRAM [Concomitant]
     Indication: NERVOUS SYSTEM DISORDER
  5. AMLODIPINE BESYLATE [Concomitant]
  6. OXYBUTYNIN CHLORIDE [Concomitant]
  7. PRAVASTATIN [Concomitant]

REACTIONS (1)
  - BLADDER DISORDER [None]
